FAERS Safety Report 5133870-2 (Version None)
Quarter: 2006Q4

REPORT INFORMATION
  Report Type: 
  Country: None (occurrence: None)
  Receive Date: 20061018
  Receipt Date: 20060928
  Transmission Date: 20070319
  Serious: No
  Sender: FDA-Public Use
  Company Number: 20063239

PATIENT
  Sex: Male

DRUGS (1)
  1. LIORESAL [Suspect]
     Indication: MUSCLE SPASTICITY
     Dosage: UNK MCG, DAILY, INTRATHECAL
     Route: 037

REACTIONS (2)
  - MUSCLE SPASTICITY [None]
  - PRIAPISM [None]
